FAERS Safety Report 9398750 (Version 2)
Quarter: 2013Q3

REPORT INFORMATION
  Report Type: Spontaneous
  Country: CA (occurrence: CA)
  Receive Date: 20130713
  Receipt Date: 20130829
  Transmission Date: 20140515
  Serious: Yes (Other)
  Sender: FDA-Public Use
  Company Number: CA-JNJFOC-20130702209

PATIENT
  Age: 22 Year
  Sex: Female
  Weight: 51.26 kg

DRUGS (2)
  1. REACTINE EXTRA STRENGTH [Suspect]
     Route: 048
  2. REACTINE EXTRA STRENGTH [Suspect]
     Indication: SEASONAL ALLERGY
     Dosage: AS NEEDED
     Route: 048
     Dates: start: 20130626, end: 20130630

REACTIONS (4)
  - Tooth fracture [Recovered/Resolved]
  - Contusion [Recovered/Resolved]
  - Fall [Recovered/Resolved]
  - Syncope [Recovered/Resolved]
